FAERS Safety Report 21671038 (Version 1)
Quarter: 2022Q4

REPORT INFORMATION
  Report Type: Report from Study
  Country: CA (occurrence: CA)
  Receive Date: 20221202
  Receipt Date: 20221202
  Transmission Date: 20230113
  Serious: Yes (Other)
  Sender: FDA-Public Use
  Company Number: CA-JNJFOC-20221165773

PATIENT
  Sex: Female
  Weight: 96 kg

DRUGS (1)
  1. REMICADE [Suspect]
     Active Substance: INFLIXIMAB
     Indication: Psoriasis
     Dosage: THE PATIENT WAS RECEIVED INFUSION ON 29-NOV-2022
     Route: 042

REACTIONS (2)
  - Ligament injury [Not Recovered/Not Resolved]
  - Off label use [Unknown]
